FAERS Safety Report 14685935 (Version 1)
Quarter: 2018Q1

REPORT INFORMATION
  Report Type: Spontaneous
  Country: US (occurrence: US)
  Receive Date: 20180326
  Receipt Date: 20180326
  Transmission Date: 20180509
  Serious: Yes (Hospitalization)
  Sender: FDA-Public Use
  Company Number: None

PATIENT
  Age: 14 Year
  Sex: Male
  Weight: 94.05 kg

DRUGS (6)
  1. TOPIRAMATE (TOPOMAX) [Concomitant]
  2. INVEGA [Concomitant]
     Active Substance: PALIPERIDONE
  3. MEN^S MULTI-VITAMIN [Concomitant]
  4. FELBAMATE. [Suspect]
     Active Substance: FELBAMATE
     Indication: EPILEPSY
     Dosage: ?          QUANTITY:78 TABLET(S);?
     Route: 048
     Dates: start: 20180324, end: 20180326
  5. CLONAZAPAM [Concomitant]
     Active Substance: CLONAZEPAM
  6. MELATONIN [Concomitant]
     Active Substance: MELATONIN

REACTIONS (1)
  - Generalised tonic-clonic seizure [None]

NARRATIVE: CASE EVENT DATE: 20180326
